FAERS Safety Report 4597854-5 (Version None)
Quarter: 2005Q1

REPORT INFORMATION
  Report Type: 
  Country: None (occurrence: None)
  Receive Date: 20050301
  Receipt Date: 20050214
  Transmission Date: 20050727
  Serious: Yes (Life-Threatening)
  Sender: FDA-Public Use
  Company Number: S05-GER-00139-01

PATIENT
  Age: 57 Year
  Sex: Female

DRUGS (6)
  1. CITALOPRAM HYDROBROMIDE [Suspect]
     Indication: DEPRESSION
     Dosage: 20 MG QD
     Dates: start: 20041101, end: 20041109
  2. EUSAPRIM [Suspect]
     Indication: URINARY TRACT INFECTION
     Dosage: UNK
     Route: 065
     Dates: start: 20041027, end: 20041031
  3. FAVISTAN (THIAMAZOLE) [Suspect]
     Indication: HYPERTHYROIDISM
     Dates: start: 20010201, end: 20041109
  4. FEMARA [Concomitant]
  5. DEXAMETHASONE [Concomitant]
  6. SPIZEF (CEFOTIAM HYDROCHLORIDE) [Concomitant]

REACTIONS (5)
  - AGRANULOCYTOSIS [None]
  - DYSPNOEA [None]
  - PYREXIA [None]
  - TONSILLITIS [None]
  - URINARY TRACT INFECTION [None]
